FAERS Safety Report 13055615 (Version 1)
Quarter: 2016Q4

REPORT INFORMATION
  Report Type: Spontaneous
  Country: GB (occurrence: GB)
  Receive Date: 20161222
  Receipt Date: 20161222
  Transmission Date: 20170207
  Serious: Yes (Other)
  Sender: FDA-Public Use
  Company Number: GB-PFIZER INC-2016584313

PATIENT
  Sex: Female

DRUGS (2)
  1. FOLINIC ACID [Concomitant]
     Active Substance: LEUCOVORIN
     Indication: PLACENTA ACCRETA
     Dosage: 50 MG, ALTERNATE DAY
     Route: 030
  2. METHOTREXATE SODIUM. [Suspect]
     Active Substance: METHOTREXATE SODIUM
     Indication: PLACENTA ACCRETA
     Dosage: 50 MG, DAILY (FOR 3 DAYS , THEN AT 8 WEEKS POSTPARTUM)
     Route: 030

REACTIONS (4)
  - Product use issue [Unknown]
  - Abdominal pain lower [Unknown]
  - Uterine perforation [Unknown]
  - Vaginal haemorrhage [Unknown]
